FAERS Safety Report 4383549-X (Version None)
Quarter: 2004Q2

REPORT INFORMATION
  Report Type: 
  Country: None (occurrence: None)
  Receive Date: 20040602
  Receipt Date: 20031001
  Transmission Date: 20050107
  Serious: Yes (Other)
  Sender: FDA-Public Use
  Company Number: JRFUSA2000004078

PATIENT
  Age: 44 Year
  Sex: Female
  Weight: 54.4316 kg

DRUGS (6)
  1. PROPULSID [Suspect]
     Indication: GASTROOESOPHAGEAL REFLUX DISEASE
     Dosage: 10 + 20 MG, 4 IN 1 DAY, ORAL
     Route: 048
     Dates: start: 19950101, end: 20000501
  2. PROPULSID [Suspect]
     Indication: GASTROOESOPHAGEAL REFLUX DISEASE
     Dosage: 10 + 20 MG, 4 IN 1 DAY, ORAL
     Route: 048
     Dates: start: 20000501
  3. SYNTHROID [Concomitant]
  4. INDERAL [Concomitant]
  5. PRILOSEC [Concomitant]
  6. CYTOMEL [Concomitant]

REACTIONS (5)
  - ELECTROCARDIOGRAM ABNORMAL [None]
  - ELECTROCARDIOGRAM QT PROLONGED [None]
  - GASTRITIS [None]
  - OESOPHAGITIS [None]
  - VENTRICULAR TACHYCARDIA [None]
